FAERS Safety Report 6121988 (Version 2)
Quarter: 2013Q3

REPORT INFORMATION
  Report Type: Spontaneous
  Country: US (occurrence: None)
  Receive Date: 20060823
  Receipt Date: 20130829
  Transmission Date: 20140515
  Serious: Yes (Other)
  Sender: FDA-Public Use
  Company Number: 2006US-03318

PATIENT
  Age: 7 Year
  Sex: Female

DRUGS (3)
  1. MORPHINE SULFATE [Suspect]
  2. SEVOFLURANE [Concomitant]
  3. SALINE [Concomitant]

REACTIONS (3)
  - Nervous system disorder [None]
  - Neurological examination abnormal [None]
  - Motor dysfunction [None]
